FAERS Safety Report 9755975 (Version 2)
Quarter: 2014Q2

REPORT INFORMATION
  Report Type: Spontaneous
  Country: CA (occurrence: CA)
  Receive Date: 20131213
  Receipt Date: 20140424
  Transmission Date: 20141212
  Serious: Yes (Hospitalization)
  Sender: FDA-Public Use
  Company Number: CA-GLAXOSMITHKLINE-A1052546A

PATIENT
  Age: 71 Year
  Sex: Female
  Weight: 109.1 kg

DRUGS (1)
  1. ADVAIR [Suspect]
     Indication: CHRONIC OBSTRUCTIVE PULMONARY DISEASE
     Dosage: 1PUFF TWICE PER DAY
     Route: 055
     Dates: start: 2002

REACTIONS (9)
  - Dyspnoea [Recovered/Resolved]
  - Stress [Unknown]
  - Fall [Unknown]
  - Head injury [Unknown]
  - Contusion [Not Recovered/Not Resolved]
  - Post-traumatic headache [Not Recovered/Not Resolved]
  - Bronchitis [Unknown]
  - Fatigue [Unknown]
  - Cardiac failure congestive [Unknown]
